FAERS Safety Report 5990612-6 (Version None)
Quarter: 2008Q4

REPORT INFORMATION
  Report Type: 
  Country: None (occurrence: None)
  Receive Date: 20081211
  Receipt Date: 20081205
  Transmission Date: 20090506
  Serious: Yes (Death, Hospitalization)
  Sender: FDA-Public Use
  Company Number: A0759890A

PATIENT
  Age: 56 Year
  Sex: Female

DRUGS (7)
  1. AVANDIA [Suspect]
     Indication: TYPE 2 DIABETES MELLITUS
     Dosage: 4MG PER DAY
     Route: 048
  2. SYNTHROID [Concomitant]
  3. CRESTOR [Concomitant]
  4. QUINAPRIL [Concomitant]
  5. ALDACTAZIDE [Concomitant]
  6. DIGOXIN [Concomitant]
  7. COREG [Concomitant]

REACTIONS (3)
  - CARDIOVASCULAR DISORDER [None]
  - DEATH [None]
  - HYPERTENSION [None]
